FAERS Safety Report 4660818-7 (Version None)
Quarter: 2005Q2

REPORT INFORMATION
  Report Type: 
  Country: None (occurrence: None)
  Receive Date: 20050511
  Receipt Date: 20050428
  Transmission Date: 20051028
  Serious: Yes (Other)
  Sender: FDA-Public Use
  Company Number: 2005067125

PATIENT
  Age: 74 Year
  Sex: Female

DRUGS (4)
  1. DETROL LA [Suspect]
     Indication: ILL-DEFINED DISORDER
     Dosage: 4 MG (4 MG, 1 IN 1 D)
  2. CODEINE SUL TAB [Suspect]
     Indication: ILL-DEFINED DISORDER
     Dates: start: 20050101, end: 20050101
  3. WARFARIN SODIUM [Concomitant]
  4. ALL OTHER THERAPEUTIC PRODUCTS (ALL OTHER THERAPEUTIC PRODUCTS) [Concomitant]

REACTIONS (10)
  - BLADDER SPASM [None]
  - CARDIAC PACEMAKER INSERTION [None]
  - CATARACT [None]
  - DIZZINESS [None]
  - GLAUCOMA [None]
  - PRURITUS [None]
  - ROTATOR CUFF SYNDROME [None]
  - SKIN HAEMORRHAGE [None]
  - SKIN LESION [None]
  - URTICARIA [None]
